FAERS Safety Report 6920045-7 (Version None)
Quarter: 2010Q3

REPORT INFORMATION
  Report Type: 
  Country: None (occurrence: None)
  Receive Date: 20100811
  Receipt Date: 20100730
  Transmission Date: 20110219
  Serious: Yes (Other)
  Sender: FDA-Public Use
  Company Number: ES-PFIZER INC-2010062608

PATIENT
  Age: 60 Year
  Sex: Female
  Weight: 60 kg

DRUGS (4)
  1. LYRICA [Suspect]
     Indication: RADICULITIS
     Dosage: 150 MG, 3X/DAY
     Dates: start: 20060201, end: 20091101
  2. LYRICA [Suspect]
     Indication: POST HERPETIC NEURALGIA
  3. DEXKETOPROFEN [Concomitant]
     Dosage: UNK
     Route: 048
  4. OMEPRAZOLE [Concomitant]
     Dosage: UNK
     Route: 048

REACTIONS (1)
  - HERPES ZOSTER [None]
